FAERS Safety Report 6983694-6 (Version None)
Quarter: 2010Q3

REPORT INFORMATION
  Report Type: 
  Country: None (occurrence: None)
  Receive Date: 20100914
  Receipt Date: 20051125
  Transmission Date: 20110219
  Serious: Yes (Hospitalization)
  Sender: FDA-Public Use
  Company Number: US-WYE-H07142708

PATIENT
  Age: 74 Year
  Sex: Male

DRUGS (10)
  1. IBUPROFEN [Suspect]
     Indication: OSTEOARTHRITIS
  2. IBUPROFEN [Suspect]
     Indication: BACK PAIN
  3. GABAPENTIN [Concomitant]
  4. ACETAMINOPHEN [Concomitant]
  5. BACLOFEN [Concomitant]
  6. TRAZODONE HCL [Concomitant]
  7. HYDROCODONE [Concomitant]
  8. ASPIRIN [Suspect]
     Indication: OSTEOARTHRITIS
     Route: 048
  9. ASPIRIN [Suspect]
     Indication: BACK PAIN
  10. QUININE [Concomitant]

REACTIONS (1)
  - GASTROINTESTINAL ULCER HAEMORRHAGE [None]
